FAERS Safety Report 13384361 (Version 2)
Quarter: 2017Q4

REPORT INFORMATION
  Report Type: Spontaneous
  Country: JP (occurrence: JP)
  Receive Date: 20170329
  Receipt Date: 20171222
  Transmission Date: 20180320
  Serious: Yes (Hospitalization, Other)
  Sender: FDA-Public Use
  Company Number: JP-MYLANLABS-2017M1018005

PATIENT
  Age: 52 Year
  Sex: Female
  Weight: 85 kg

DRUGS (30)
  1. PACLITAXEL. [Suspect]
     Active Substance: PACLITAXEL
     Indication: UTERINE CANCER
     Dosage: 80 MG/M2, QD
     Route: 041
     Dates: start: 20150213
  2. OLOPATADINE. [Concomitant]
     Active Substance: OLOPATADINE
     Indication: PRODUCT USED FOR UNKNOWN INDICATION
     Dosage: 10 MG, QD
     Route: 065
  3. PACLITAXEL. [Suspect]
     Active Substance: PACLITAXEL
     Indication: OVARIAN CANCER STAGE II
     Dosage: 80 MG/M2, QD
     Route: 041
     Dates: end: 20150731
  4. APREPITANT. [Concomitant]
     Active Substance: APREPITANT
     Indication: OVARIAN CANCER STAGE II
     Dosage: 80 MG, QD
     Route: 065
  5. DEXAMETHASONE. [Concomitant]
     Active Substance: DEXAMETHASONE
     Indication: OVARIAN CANCER STAGE II
  6. JZOLOFT [Interacting]
     Active Substance: SERTRALINE HYDROCHLORIDE
     Indication: UTERINE CANCER
     Dosage: 25 MG, QD
     Route: 048
  7. ZANTAC [Interacting]
     Active Substance: RANITIDINE HYDROCHLORIDE
     Indication: OVARIAN CANCER STAGE II
  8. DIPHENHYDRAMINE. [Concomitant]
     Active Substance: DIPHENHYDRAMINE
     Indication: OVARIAN CANCER STAGE II
  9. PALONOSETRON. [Concomitant]
     Active Substance: PALONOSETRON HYDROCHLORIDE
     Indication: OVARIAN CANCER STAGE II
  10. GRANISETRON [Concomitant]
     Active Substance: GRANISETRON
     Indication: UTERINE CANCER
     Dosage: 3 MG, QD
     Route: 065
  11. ALPRAZOLAM. [Concomitant]
     Active Substance: ALPRAZOLAM
     Indication: PRODUCT USED FOR UNKNOWN INDICATION
     Dosage: 0.4 MG, TID
     Route: 048
  12. MAGNESIUM OXIDE. [Concomitant]
     Active Substance: MAGNESIUM OXIDE
     Indication: PRODUCT USED FOR UNKNOWN INDICATION
     Dosage: 330 MG, TID
     Route: 048
  13. APREPITANT. [Concomitant]
     Active Substance: APREPITANT
     Indication: UTERINE CANCER
     Dosage: 125 MG, QD
     Route: 065
  14. AMLODIPINE [Concomitant]
     Active Substance: AMLODIPINE BESYLATE
     Indication: PRODUCT USED FOR UNKNOWN INDICATION
     Dosage: 5 MG, QD
     Route: 048
  15. RABEPRAZOLE [Concomitant]
     Active Substance: RABEPRAZOLE
     Indication: PRODUCT USED FOR UNKNOWN INDICATION
     Dosage: 10 MG, QD
     Route: 048
  16. FUROSEMIDE. [Concomitant]
     Active Substance: FUROSEMIDE
     Indication: PRODUCT USED FOR UNKNOWN INDICATION
     Dosage: 20 MG, QD
     Route: 048
  17. CARBOPLATIN MYLAN [Suspect]
     Active Substance: CARBOPLATIN
     Indication: UTERINE CANCER
     Dosage: 834 MG, CYCLE
     Route: 065
     Dates: start: 20150213
  18. DIPHENHYDRAMINE. [Concomitant]
     Active Substance: DIPHENHYDRAMINE
     Indication: UTERINE CANCER
     Dosage: 50 MG, QD
     Route: 065
  19. PALONOSETRON. [Concomitant]
     Active Substance: PALONOSETRON HYDROCHLORIDE
     Indication: UTERINE CANCER
     Dosage: 0.75 MG, QD
     Route: 065
  20. BROTIZOLAM [Concomitant]
     Active Substance: BROTIZOLAM
     Indication: PRODUCT USED FOR UNKNOWN INDICATION
     Dosage: 0.25 MG, QD
     Route: 065
  21. VALSARTAN. [Concomitant]
     Active Substance: VALSARTAN
     Indication: PRODUCT USED FOR UNKNOWN INDICATION
     Dosage: 80 MG, BID
     Route: 065
  22. CITRATE [Concomitant]
     Active Substance: CITRIC ACID MONOHYDRATE
     Indication: PRODUCT USED FOR UNKNOWN INDICATION
     Dosage: 50 MG, BID
     Route: 065
  23. LOXOPROFEN [Concomitant]
     Active Substance: LOXOPROFEN
     Indication: PAIN
     Dosage: 60 MG, PRN
     Route: 048
  24. DOMPERIDONE [Concomitant]
     Active Substance: DOMPERIDONE
     Indication: NAUSEA
     Dosage: 10 MG, PRN
     Route: 048
  25. GRANISETRON [Concomitant]
     Active Substance: GRANISETRON
     Indication: OVARIAN CANCER STAGE II
  26. CARBOPLATIN MYLAN [Suspect]
     Active Substance: CARBOPLATIN
     Indication: OVARIAN CANCER STAGE II
     Dosage: 673 MG, CYCLE
     Route: 041
     Dates: end: 20150717
  27. ZANTAC [Interacting]
     Active Substance: RANITIDINE HYDROCHLORIDE
     Indication: UTERINE CANCER
     Dosage: 50 MG, CYCLE
     Route: 041
     Dates: start: 20150213, end: 20150605
  28. JZOLOFT [Interacting]
     Active Substance: SERTRALINE HYDROCHLORIDE
     Indication: OVARIAN CANCER STAGE II
  29. DEXAMETHASONE. [Concomitant]
     Active Substance: DEXAMETHASONE
     Indication: UTERINE CANCER
     Dosage: 6.6 MG, QD
     Route: 065
  30. CLOTIAZEPAM [Concomitant]
     Active Substance: CLOTIAZEPAM
     Indication: ANXIETY
     Dosage: 5 MG, PRN
     Route: 048

REACTIONS (5)
  - Renal impairment [Not Recovered/Not Resolved]
  - Akathisia [Recovered/Resolved]
  - Hypoaesthesia [Not Recovered/Not Resolved]
  - Cytopenia [Unknown]
  - Drug interaction [Recovered/Resolved]

NARRATIVE: CASE EVENT DATE: 20150220
